FAERS Safety Report 25281036 (Version 2)
Quarter: 2025Q2

REPORT INFORMATION
  Report Type: Spontaneous
  Country: IN (occurrence: IN)
  Receive Date: 20250508
  Receipt Date: 20250522
  Transmission Date: 20250716
  Serious: Yes (Other)
  Sender: ALKEM
  Company Number: None

PATIENT
  Age: 25 Year
  Sex: Male

DRUGS (2)
  1. TACROLIMUS [Suspect]
     Active Substance: TACROLIMUS
     Indication: Focal segmental glomerulosclerosis
     Dosage: 0.5 MILLIGRAM, BID (EVERY 12 HOUR)
     Route: 065
     Dates: start: 2018, end: 2023
  2. TACROLIMUS [Suspect]
     Active Substance: TACROLIMUS
     Route: 065
     Dates: start: 2023

REACTIONS (8)
  - Immunosuppressant drug level increased [Unknown]
  - New onset diabetes after transplantation [Unknown]
  - Pleural effusion [Unknown]
  - Bronchopulmonary aspergillosis [Unknown]
  - Pulmonary tuberculosis [Unknown]
  - Hepatitis C [Unknown]
  - Meningitis cryptococcal [Recovering/Resolving]
  - Pulmonary nocardiosis [Unknown]

NARRATIVE: CASE EVENT DATE: 20220101
